FAERS Safety Report 18161960 (Version 1)
Quarter: 2020Q3

REPORT INFORMATION
  Report Type: Spontaneous
  Country: US (occurrence: US)
  Receive Date: 20200817
  Receipt Date: 20200817
  Transmission Date: 20201103
  Serious: No
  Sender: FDA-Public Use
  Company Number: None

PATIENT
  Age: 56 Year
  Sex: Female

DRUGS (2)
  1. HUMIRA [Suspect]
     Active Substance: ADALIMUMAB
     Indication: RHEUMATOID ARTHRITIS
     Dosage: ?          OTHER FREQUENCY:EVERY2WEEKSASDIR;?
     Route: 058
     Dates: start: 202002
  2. HUMIRA [Suspect]
     Active Substance: ADALIMUMAB
     Indication: POLYARTHRITIS
     Dosage: ?          OTHER FREQUENCY:EVERY2WEEKSASDIR;?
     Route: 058
     Dates: start: 202002

REACTIONS (2)
  - Infection [None]
  - Therapy interrupted [None]
